FAERS Safety Report 14100065 (Version 2)
Quarter: 2018Q2

REPORT INFORMATION
  Report Type: Spontaneous
  Country: FR (occurrence: FR)
  Receive Date: 20171017
  Receipt Date: 20180427
  Transmission Date: 20180711
  Serious: Yes (Other)
  Sender: FDA-Public Use
  Company Number: FR-MERCK KGAA-2030388

PATIENT
  Age: 63 Year
  Sex: Female
  Weight: 94 kg

DRUGS (2)
  1. NOVOTHYROX [Suspect]
     Active Substance: LEVOTHYROXINE SODIUM
     Indication: THYROIDECTOMY
     Route: 048
     Dates: start: 201704
  2. NOVOTHYROX [Suspect]
     Active Substance: LEVOTHYROXINE SODIUM

REACTIONS (28)
  - Headache [Not Recovered/Not Resolved]
  - Mood swings [None]
  - Dyspnoea [Not Recovered/Not Resolved]
  - Disturbance in attention [Not Recovered/Not Resolved]
  - Myalgia [Not Recovered/Not Resolved]
  - Nervousness [Not Recovered/Not Resolved]
  - Hot flush [Not Recovered/Not Resolved]
  - Loss of personal independence in daily activities [None]
  - Decreased interest [None]
  - Agitation [None]
  - Blood thyroid stimulating hormone increased [Not Recovered/Not Resolved]
  - Muscle spasms [Not Recovered/Not Resolved]
  - Irritability [Not Recovered/Not Resolved]
  - Weight increased [None]
  - Fatigue [Not Recovered/Not Resolved]
  - Hyperhidrosis [Not Recovered/Not Resolved]
  - Middle insomnia [Not Recovered/Not Resolved]
  - Swelling [None]
  - Vertigo [Not Recovered/Not Resolved]
  - Therapy change [Not Recovered/Not Resolved]
  - Arthralgia [None]
  - Aggression [None]
  - Personal relationship issue [None]
  - Social avoidant behaviour [None]
  - Discomfort [None]
  - Insomnia [None]
  - Heart rate increased [None]
  - Diarrhoea [Not Recovered/Not Resolved]

NARRATIVE: CASE EVENT DATE: 201704
